FAERS Safety Report 15200478 (Version 1)
Quarter: 2018Q3

REPORT INFORMATION
  Report Type: Spontaneous
  Country: GB (occurrence: GB)
  Receive Date: 20180726
  Receipt Date: 20180726
  Transmission Date: 20181010
  Serious: Yes (Other)
  Sender: FDA-Public Use
  Company Number: GB-TEVA-2018-GB-930624

PATIENT
  Age: 69 Year
  Sex: Female
  Weight: 68 kg

DRUGS (17)
  1. CLOBETASONE BUTYRATE [Concomitant]
     Active Substance: CLOBETASONE BUTYRATE
     Dosage: 1?2 TIMES A DAY THINLY.
     Route: 065
     Dates: start: 20170921, end: 20180620
  2. HYDROXOCOBALAMIN [Concomitant]
     Active Substance: HYDROXOCOBALAMIN
     Dosage: USE AS DIRECTED.
     Route: 065
     Dates: start: 20180619, end: 20180620
  3. DERMOVATE [Concomitant]
     Active Substance: CLOBETASOL
     Dosage: 1?2 DAY TIMES A /DAY.
     Route: 065
     Dates: start: 20180423, end: 20180521
  4. OMEPRAZOLE. [Concomitant]
     Active Substance: OMEPRAZOLE
     Dosage: 1 DOSAGE FORMS DAILY;
     Dates: start: 20150224
  5. PROPRANOLOL [Concomitant]
     Active Substance: PROPRANOLOL HYDROCHLORIDE
     Dosage: 2 DOSAGE FORMS DAILY;
     Route: 065
     Dates: start: 20170904
  6. ORAMORPH [Concomitant]
     Active Substance: MORPHINE SULFATE
     Dosage: 5ML TO BE USED 4?6 HOUR.
     Route: 065
     Dates: start: 20180413, end: 20180423
  7. ESTRIOL [Concomitant]
     Active Substance: ESTRIOL
     Dosage: TO BE INSERTED
     Route: 065
     Dates: start: 20120626
  8. ATORVASTATIN [Concomitant]
     Active Substance: ATORVASTATIN
     Dosage: 1 DOSAGE FORMS DAILY; AT NIGHT
     Route: 065
     Dates: start: 20170731
  9. NORTRIPTYLINE [Concomitant]
     Active Substance: NORTRIPTYLINE
     Dosage: AS DIRECTED
     Route: 065
     Dates: start: 20170904
  10. CALCIUM CARBONATE. [Concomitant]
     Active Substance: CALCIUM CARBONATE
     Dosage: 2 DOSAGE FORMS DAILY;
     Route: 065
     Dates: start: 20120626
  11. TOLTERODINE TARTRATE. [Concomitant]
     Active Substance: TOLTERODINE TARTRATE
     Dosage: 2 DOSAGE FORMS DAILY;
     Route: 065
     Dates: start: 20180314
  12. FULTIUM?D3 [Concomitant]
     Active Substance: CHOLECALCIFEROL
     Dosage: TWICE DAILY.
     Route: 065
     Dates: start: 20171103
  13. ALGINATES [Concomitant]
     Dosage: 40 ML DAILY; 30 MIN AFTER MEALS IN MORNING AND AT BED TIME
     Route: 065
     Dates: start: 20160119
  14. ALENDRONIC ACID [Concomitant]
     Active Substance: ALENDRONIC ACID
     Route: 065
     Dates: start: 20020111, end: 20180620
  15. RISEDRONATE SODIUM. [Suspect]
     Active Substance: RISEDRONATE SODIUM
     Route: 065
     Dates: start: 20180620
  16. RAMIPRIL. [Concomitant]
     Active Substance: RAMIPRIL
     Dosage: 1 DOSAGE FORMS DAILY;
     Route: 065
     Dates: start: 20120615
  17. CARMELLOSE [Concomitant]
     Route: 065
     Dates: start: 20161102

REACTIONS (1)
  - Anaphylactoid reaction [Recovered/Resolved]

NARRATIVE: CASE EVENT DATE: 20180620
